FAERS Safety Report 24372480 (Version 1)
Quarter: 2024Q3

REPORT INFORMATION
  Report Type: Spontaneous
  Country: FR (occurrence: FR)
  Receive Date: 20240927
  Receipt Date: 20240927
  Transmission Date: 20241016
  Serious: Yes (Hospitalization)
  Sender: RANBAXY
  Company Number: FR-AFSSAPS-TS2024000763

PATIENT
  Age: 14 Year
  Sex: Male
  Weight: 75 kg

DRUGS (2)
  1. ACETAMINOPHEN [Suspect]
     Active Substance: ACETAMINOPHEN
     Indication: Headache
     Dosage: 1 GRAM, UNK
     Route: 048
     Dates: start: 20240610, end: 20240610
  2. CODEINE [Suspect]
     Active Substance: CODEINE
     Indication: Headache
     Dosage: 60 MILLIGRAM, UNK
     Route: 048
     Dates: start: 20240610, end: 20240610

REACTIONS (8)
  - Vomiting [Recovered/Resolved]
  - Opiates positive [Recovered/Resolved]
  - Analgesic drug level increased [Recovered/Resolved]
  - Disorientation [Recovered/Resolved]
  - Bradypnoea [Recovered/Resolved]
  - Urinary retention [Recovered/Resolved]
  - Miosis [Recovered/Resolved]
  - Loss of consciousness [Recovered/Resolved]

NARRATIVE: CASE EVENT DATE: 20240610
